FAERS Safety Report 24377525 (Version 1)
Quarter: 2024Q3

REPORT INFORMATION
  Report Type: Spontaneous
  Country: SK (occurrence: SK)
  Receive Date: 20240930
  Receipt Date: 20240930
  Transmission Date: 20241016
  Serious: Yes (Death)
  Sender: ABBVIE
  Company Number: SK-ABBVIE-5943171

PATIENT
  Sex: Male

DRUGS (1)
  1. GLECAPREVIR\PIBRENTASVIR [Suspect]
     Active Substance: GLECAPREVIR\PIBRENTASVIR
     Indication: Hepatitis C
     Route: 048

REACTIONS (11)
  - Cerebrovascular accident [Fatal]
  - Dyschezia [Unknown]
  - Mydriasis [Unknown]
  - Grip strength decreased [Unknown]
  - Insomnia [Unknown]
  - Headache [Unknown]
  - Fatigue [Unknown]
  - Incoherent [Unknown]
  - Abdominal pain [Unknown]
  - Tremor [Unknown]
  - Asthenia [Unknown]
